FAERS Safety Report 6804488-8 (Version None)
Quarter: 2010Q2

REPORT INFORMATION
  Report Type: 
  Country: None (occurrence: None)
  Receive Date: 20100628
  Receipt Date: 20070330
  Transmission Date: 20101027
  Serious: No
  Sender: FDA-Public Use
  Company Number: US-PFIZER INC-2007025883

PATIENT
  Sex: Female

DRUGS (3)
  1. GEODON [Suspect]
     Dates: start: 20061201
  2. PAMELOR [Concomitant]
  3. CYMBALTA [Concomitant]

REACTIONS (4)
  - HUNGER [None]
  - ILL-DEFINED DISORDER [None]
  - INCREASED APPETITE [None]
  - THIRST [None]
